FAERS Safety Report 9458080 (Version 1)
Quarter: 2013Q3

REPORT INFORMATION
  Report Type: Spontaneous
  Country: GB (occurrence: None)
  Receive Date: 20130812
  Receipt Date: 20130812
  Transmission Date: 20140515
  Serious: Yes (Other)
  Sender: FDA-Public Use
  Company Number: AUR-APL-2013-06455

PATIENT
  Sex: Male
  Weight: 110 kg

DRUGS (5)
  1. MONTELUKAST [Suspect]
     Indication: ASTHMA
     Route: 048
     Dates: start: 20130529, end: 20130602
  2. CLENIL MODULITE (BECLOMETSONE DIPROPIONATE) [Concomitant]
  3. LORATIDINE [Concomitant]
  4. MOMETASONE FUROATE (MOMETASONE FUROATE) [Concomitant]
  5. SALBUTAMOL (SALBUTAMOL) [Concomitant]

REACTIONS (4)
  - Abdominal pain [None]
  - Rectal haemorrhage [None]
  - Headache [None]
  - Liver function test abnormal [None]
